FAERS Safety Report 4858669-3 (Version None)
Quarter: 2005Q4

REPORT INFORMATION
  Report Type: 
  Country: None (occurrence: None)
  Receive Date: 20051219
  Receipt Date: 20051010
  Transmission Date: 20060501
  Serious: No
  Sender: FDA-Public Use
  Company Number: US-GLAXOSMITHKLINE-A0578417A

PATIENT
  Age: 61 Year
  Sex: Female
  Weight: 90 kg

DRUGS (17)
  1. NICODERM 21MG (RX) [Suspect]
  2. COMMIT [Suspect]
     Dates: end: 20051009
  3. NICODERM 14MG (RX) [Suspect]
  4. MULTI-VITAMIN [Concomitant]
  5. FIBER CON [Concomitant]
  6. STOOL SOFTENER [Concomitant]
  7. TRAZODONE HCL [Concomitant]
     Indication: ANXIETY
  8. DARVOCET [Concomitant]
     Indication: ARTHRITIS
  9. NORVASC [Concomitant]
     Indication: BLOOD PRESSURE
  10. PHENERGAN [Concomitant]
     Indication: NAUSEA
  11. PROTONIX [Concomitant]
  12. HYDROCHLOROTHIAZIDE [Concomitant]
  13. BENTYL [Concomitant]
     Indication: GASTRIC DISORDER
  14. TRAMADOL HCL [Concomitant]
     Indication: PAIN
  15. DOXEPIN HCL [Concomitant]
  16. ALBUTEROL [Concomitant]
  17. IPRATROPIUM BROMIDE [Concomitant]

REACTIONS (9)
  - DYSKINESIA [None]
  - DYSPNOEA [None]
  - HYPERSENSITIVITY [None]
  - NAUSEA [None]
  - PALPITATIONS [None]
  - SWELLING [None]
  - THROAT TIGHTNESS [None]
  - TREMOR [None]
  - URTICARIA [None]
